FAERS Safety Report 14630672 (Version 1)
Quarter: 2018Q1

REPORT INFORMATION
  Report Type: Spontaneous
  Country: US (occurrence: US)
  Receive Date: 20180313
  Receipt Date: 20180313
  Transmission Date: 20180509
  Serious: No
  Sender: FDA-Public Use
  Company Number: US-009507513-1802USA004542

PATIENT
  Age: 68 Year
  Sex: Female

DRUGS (6)
  1. ZOCOR [Suspect]
     Active Substance: SIMVASTATIN
     Indication: BLOOD CHOLESTEROL
     Dosage: 40 MG, 1 TABLET EVERY OTHER NIGHT
     Route: 048
  2. PNEUMOVAX 23 [Suspect]
     Active Substance: PNEUMOCOCCAL VACCINE, POLYVALENT 23
     Indication: PROPHYLAXIS
     Route: 030
     Dates: start: 20180206, end: 20180206
  3. ASPIRIN. [Suspect]
     Active Substance: ASPIRIN
     Dosage: 81 MG, DAILY
     Route: 048
  4. ZYRTEC [Suspect]
     Active Substance: CETIRIZINE HYDROCHLORIDE
     Dosage: 10 MG, DAILY
     Route: 048
  5. HYDROCODONE [Concomitant]
     Active Substance: HYDROCODONE
     Dosage: UNK
  6. KLONOPIN [Suspect]
     Active Substance: CLONAZEPAM
     Indication: SLEEP DISORDER
     Dosage: 1 MG, HS (AT BEDTIME) AS NEEDED
     Route: 048

REACTIONS (4)
  - Injection site swelling [Recovering/Resolving]
  - Injection site erythema [Recovering/Resolving]
  - Injection site warmth [Unknown]
  - Product use issue [Unknown]

NARRATIVE: CASE EVENT DATE: 20180206
